FAERS Safety Report 13978341 (Version 2)
Quarter: 2017Q4

REPORT INFORMATION
  Report Type: Spontaneous
  Country: US (occurrence: US)
  Receive Date: 20170915
  Receipt Date: 20171010
  Transmission Date: 20180321
  Serious: Yes (Other)
  Sender: FDA-Public Use
  Company Number: US-009507513-1709USA007284

PATIENT
  Sex: Male

DRUGS (2)
  1. STERILE DILUENT [Suspect]
     Active Substance: WATER
  2. EMEND (FOSAPREPITANT DIMEGLUMINE) [Suspect]
     Active Substance: FOSAPREPITANT DIMEGLUMINE
     Route: 042

REACTIONS (2)
  - Anaphylactic shock [Recovered/Resolved]
  - Anaphylactic reaction [Unknown]
